FAERS Safety Report 13973743 (Version 2)
Quarter: 2017Q4

REPORT INFORMATION
  Report Type: Spontaneous
  Country: US (occurrence: US)
  Receive Date: 20170914
  Receipt Date: 20171024
  Transmission Date: 20180321
  Serious: Yes (Death, Hospitalization, Other)
  Sender: FDA-Public Use
  Company Number: US-ELI_LILLY_AND_COMPANY-US201709004331

PATIENT
  Age: 76 Year
  Sex: Female

DRUGS (2)
  1. HUMULIN R [Suspect]
     Active Substance: INSULIN HUMAN
     Indication: PRODUCT USED FOR UNKNOWN INDICATION
     Dosage: UNK, UNKNOWN
     Route: 065
     Dates: start: 201704
  2. POTASSIUM [Concomitant]
     Active Substance: POTASSIUM
     Indication: PRODUCT USED FOR UNKNOWN INDICATION
     Dosage: UNK, UNKNOWN
     Route: 065

REACTIONS (12)
  - Cerebral haemorrhage [Unknown]
  - Peripheral swelling [Not Recovered/Not Resolved]
  - Blood glucose increased [Unknown]
  - Burning sensation [Unknown]
  - Drug hypersensitivity [Unknown]
  - Erythema [Not Recovered/Not Resolved]
  - Arteriosclerosis [Fatal]
  - Blood glucose abnormal [Unknown]
  - Wound abscess [Not Recovered/Not Resolved]
  - Aphasia [Unknown]
  - Product storage error [Unknown]
  - Scar [Unknown]

NARRATIVE: CASE EVENT DATE: 201706
